FAERS Safety Report 7611015-4 (Version None)
Quarter: 2011Q3

REPORT INFORMATION
  Report Type: 
  Country: None (occurrence: None)
  Receive Date: 20110715
  Receipt Date: 20110708
  Transmission Date: 20111222
  Serious: Yes (Other)
  Sender: FDA-Public Use
  Company Number: US-JNJFOC-20110704385

PATIENT
  Sex: Female

DRUGS (6)
  1. TOPAMAX [Concomitant]
     Route: 065
  2. PERCOCET [Concomitant]
     Indication: PAIN
     Route: 065
  3. LYRICA [Concomitant]
     Route: 065
  4. VALIUM [Concomitant]
     Route: 065
  5. DURAGESIC-100 [Suspect]
     Indication: PAIN
     Route: 062
     Dates: start: 20010101
  6. ADDERALL 10 [Concomitant]
     Route: 065

REACTIONS (7)
  - UPPER LIMB FRACTURE [None]
  - NAUSEA [None]
  - RIB FRACTURE [None]
  - POST-TRAUMATIC STRESS DISORDER [None]
  - HIP FRACTURE [None]
  - MALAISE [None]
  - PAIN [None]
